FAERS Safety Report 5888340-0 (Version None)
Quarter: 2008Q3

REPORT INFORMATION
  Report Type: 
  Country: None (occurrence: None)
  Receive Date: 20080916
  Receipt Date: 20080901
  Transmission Date: 20090109
  Serious: Yes (Death)
  Sender: FDA-Public Use
  Company Number: 2008S1015898

PATIENT
  Age: 19 Year
  Sex: Male

DRUGS (6)
  1. CHLORPHENIRAMINE TAB [Suspect]
     Indication: DRUG USE FOR UNKNOWN INDICATION
  2. CYCLOBENZAPRINE [Suspect]
     Indication: DRUG USE FOR UNKNOWN INDICATION
  3. IBUPROFEN TABLETS [Suspect]
     Indication: DRUG USE FOR UNKNOWN INDICATION
  4. PHENYTOIN [Suspect]
     Indication: DRUG USE FOR UNKNOWN INDICATION
  5. LIDOCAINE [Suspect]
     Indication: DRUG USE FOR UNKNOWN INDICATION
  6. PHENYLPROPANOLAMINE HCL [Suspect]
     Indication: DRUG USE FOR UNKNOWN INDICATION

REACTIONS (3)
  - METABOLIC ACIDOSIS [None]
  - OVERDOSE [None]
  - TACHYCARDIA [None]
